FAERS Safety Report 23661218 (Version 1)
Quarter: 2024Q1

REPORT INFORMATION
  Report Type: Spontaneous
  Country: TR (occurrence: TR)
  Receive Date: 20240322
  Receipt Date: 20240322
  Transmission Date: 20240409
  Serious: Yes (Other)
  Sender: FDA-Public Use
  Company Number: TR-PIRAMAL CRITICAL CARE LIMITED-2024-PPL-000207

PATIENT

DRUGS (4)
  1. SEVOFLURANE [Suspect]
     Active Substance: SEVOFLURANE
     Indication: Anaesthesia
     Dosage: 3 PERCENT
  2. MIDAZOLAM [Concomitant]
     Active Substance: MIDAZOLAM
     Indication: Sedation
     Dosage: 1 MILLIGRAM
  3. REMIFENTANIL [Concomitant]
     Active Substance: REMIFENTANIL
     Indication: Sedation
     Dosage: 0.5 MILLIGRAM/KILOGRAM
  4. REMIFENTANIL [Concomitant]
     Active Substance: REMIFENTANIL
     Indication: Anaesthesia
     Dosage: 0.125 MILLIGRAM/KILOGRAM/MIN

REACTIONS (3)
  - Haemoptysis [Recovering/Resolving]
  - Hypoxia [Recovering/Resolving]
  - Pulmonary alveolar haemorrhage [Unknown]
